FAERS Safety Report 15534861 (Version 1)
Quarter: 2018Q4

REPORT INFORMATION
  Report Type: Spontaneous
  Country: US (occurrence: US)
  Receive Date: 20181022
  Receipt Date: 20181022
  Transmission Date: 20190205
  Serious: No
  Sender: FDA-Public Use
  Company Number: US-TEVA-825257USA

PATIENT

DRUGS (1)
  1. MICONAZOLE 3 COMBINATION PACK [Suspect]
     Active Substance: MICONAZOLE NITRATE
     Dosage: 200 MG / 2 %

REACTIONS (1)
  - Drug ineffective [Unknown]
